FAERS Safety Report 5875987-0 (Version None)
Quarter: 2008Q3

REPORT INFORMATION
  Report Type: 
  Country: None (occurrence: None)
  Receive Date: 20080910
  Receipt Date: 20071008
  Transmission Date: 20090109
  Serious: No
  Sender: FDA-Public Use
  Company Number: US-KINGPHARMUSA00001-K200701307

PATIENT

DRUGS (2)
  1. FLORINEF [Suspect]
  2. UNKNOWN MEDICATIONS [Concomitant]

REACTIONS (1)
  - DIZZINESS [None]
